FAERS Safety Report 6580303-5 (Version None)
Quarter: 2010Q1

REPORT INFORMATION
  Report Type: 
  Country: None (occurrence: None)
  Receive Date: 20100212
  Receipt Date: 20091124
  Transmission Date: 20100710
  Serious: No
  Sender: FDA-Public Use
  Company Number: US-ALLERGAN-0916411US

PATIENT

DRUGS (5)
  1. LUMIGAN [Suspect]
     Indication: INTRAOCULAR PRESSURE INCREASED
  2. COMBIGAN [Suspect]
     Indication: INTRAOCULAR PRESSURE INCREASED
  3. XALATAN [Suspect]
     Indication: INTRAOCULAR PRESSURE INCREASED
  4. AZOPT [Suspect]
     Indication: INTRAOCULAR PRESSURE INCREASED
  5. ALREX [Suspect]
     Indication: INTRAOCULAR PRESSURE INCREASED

REACTIONS (1)
  - EYE OPERATION [None]
